FAERS Safety Report 20004958 (Version 1)
Quarter: 2021Q4

REPORT INFORMATION
  Report Type: Spontaneous
  Country: BR (occurrence: BR)
  Receive Date: 20211027
  Receipt Date: 20211027
  Transmission Date: 20220304
  Serious: Yes (Other)
  Sender: FDA-Public Use
  Company Number: BR-ALLERGAN-2135820US

PATIENT
  Sex: Male

DRUGS (1)
  1. BIMATOPROST\TIMOLOL [Suspect]
     Active Substance: BIMATOPROST\TIMOLOL
     Indication: Glaucoma
     Dosage: 2 GTT, QHS

REACTIONS (5)
  - Cataract [Unknown]
  - Eye pain [Recovering/Resolving]
  - Ocular hyperaemia [Not Recovered/Not Resolved]
  - Photophobia [Recovering/Resolving]
  - Insomnia [Recovering/Resolving]
